FAERS Safety Report 6256991-X (Version None)
Quarter: 2009Q3

REPORT INFORMATION
  Report Type: 
  Country: None (occurrence: None)
  Receive Date: 20090706
  Receipt Date: 20090623
  Transmission Date: 20100115
  Serious: Yes (Hospitalization)
  Sender: FDA-Public Use
  Company Number: A0757547A

PATIENT
  Age: 52 Year
  Sex: Female
  Weight: 105 kg

DRUGS (5)
  1. AVANDIA [Suspect]
     Dosage: 4MG TWICE PER DAY
     Route: 048
     Dates: start: 19971218, end: 20041031
  2. PROZAC [Concomitant]
  3. PRINZIDE [Concomitant]
  4. LIPITOR [Concomitant]
  5. AMARYL [Concomitant]

REACTIONS (9)
  - ASTHMA [None]
  - CARDIAC FAILURE CONGESTIVE [None]
  - CHRONIC OBSTRUCTIVE PULMONARY DISEASE [None]
  - DEAFNESS UNILATERAL [None]
  - FACIAL PALSY [None]
  - GAIT DISTURBANCE [None]
  - HYPERTENSION [None]
  - WEIGHT INCREASED [None]
  - WHEEZING [None]
